FAERS Safety Report 8209132-3 (Version None)
Quarter: 2012Q1

REPORT INFORMATION
  Report Type: 
  Country: None (occurrence: None)
  Receive Date: 20120314
  Receipt Date: 20120302
  Transmission Date: 20120608
  Serious: Yes (Death, Hospitalization, Other)
  Sender: FDA-Public Use
  Company Number: KR-BAYER-2011-036539

PATIENT
  Age: 44 Year
  Sex: Male
  Weight: 71 kg

DRUGS (54)
  1. ULTRAVIST 150 [Concomitant]
     Dosage: 140 ML, ONCE
     Route: 042
     Dates: start: 20110603, end: 20110603
  2. NORVASC [Concomitant]
     Indication: HYPERTENSION
     Dosage: 5 MG, QD
     Route: 048
     Dates: start: 20110401, end: 20110714
  3. DESOWEN [Concomitant]
     Indication: PALMAR-PLANTAR ERYTHRODYSAESTHESIA SYNDROME
     Dosage: UNK UNK, PRN
     Route: 061
     Dates: start: 20110503, end: 20110522
  4. TANTUM [Concomitant]
     Indication: PROPHYLAXIS
     Dosage: UNK UNK, PRN
     Dates: start: 20110725, end: 20110803
  5. MEK INHIBITOR (DIHYDROXYPROP-DIFLU-METHOXYPHEN-CYCLOPROPA-SULFAMI) [Suspect]
     Dosage: 50 MG, BID
     Route: 048
     Dates: start: 20110512, end: 20110714
  6. MEK INHIBITOR (DIHYDROXYPROP-DIFLU-METHOXYPHEN-CYCLOPROPA-SULFAMI) [Suspect]
     Dosage: 50 MG, QD
     Route: 048
     Dates: start: 20110715, end: 20110715
  7. SORAFENIB (RAF KINASE INHIBITOR) [Suspect]
     Dosage: 400 MG, QD
     Route: 048
     Dates: start: 20110429, end: 20110429
  8. MEGESTROL ACETATE [Concomitant]
     Dosage: 20 ML, QD
     Route: 048
     Dates: start: 20110508, end: 20110522
  9. LOPERAMIDE HCL [Concomitant]
     Dosage: 2 MG, PRN
     Route: 048
     Dates: start: 20110422, end: 20110726
  10. KLENZO SOLUTION [Concomitant]
     Indication: PROPHYLAXIS
     Dosage: UNK UNK, PRN
     Route: 048
     Dates: start: 20110725, end: 20110803
  11. SODIUM CHLORIDE [Concomitant]
     Indication: PROPHYLAXIS
     Dosage: 1000 MG, QD
     Route: 042
     Dates: start: 20110812, end: 20110813
  12. MEK INHIBITOR (DIHYDROXYPROP-DIFLU-METHOXYPHEN-CYCLOPROPA-SULFAMI) [Suspect]
     Dosage: 50 MG, QD
     Route: 048
     Dates: start: 20110511, end: 20110511
  13. ULTRAVIST 150 [Concomitant]
     Dosage: 140 ML, ONCE
     Route: 042
     Dates: start: 20110715, end: 20110715
  14. LIVACT [Concomitant]
     Indication: PROPHYLAXIS
     Dosage: 4.15 G, TID
     Route: 048
     Dates: start: 20101112
  15. LACTOBACILLUS ACIDOPHILUS [Concomitant]
     Indication: ANTIBIOTIC PROPHYLAXIS
     Dosage: 300 MG, TID
     Route: 048
     Dates: start: 20101123
  16. TELMISARTAN [Concomitant]
     Indication: HYPERTENSION
     Dosage: 40 MG, QD
     Route: 048
     Dates: start: 20110408, end: 20110727
  17. HYDROCORTISONE BUTYRATE PROPIONATE [Concomitant]
     Indication: PALMAR-PLANTAR ERYTHRODYSAESTHESIA SYNDROME
     Dosage: UNK UNK, PRN
     Route: 061
     Dates: start: 20110505, end: 20110522
  18. PANTOPRAZOLE SODIUM [Concomitant]
     Dosage: 40 MG, QD
     Route: 048
     Dates: start: 20110715
  19. MUCOGEL [Concomitant]
     Indication: GASTRIC ULCER
     Dosage: 12 G, TID
     Route: 048
     Dates: start: 20110701, end: 20110714
  20. SORAFENIB (RAF KINASE INHIBITOR) [Suspect]
     Dosage: 400 MG, QD
     Route: 048
     Dates: start: 20110715, end: 20110715
  21. ULTRAVIST 150 [Concomitant]
     Dosage: 140 ML, ONCE
     Route: 042
     Dates: start: 20110718, end: 20110718
  22. TEPRENONE [Concomitant]
     Indication: GASTRIC ULCER
     Dosage: 50 MG, TID
     Route: 048
     Dates: start: 20101123
  23. MEGESTROL ACETATE [Concomitant]
     Indication: PROPHYLAXIS
     Dosage: 20 ML, QD
     Route: 048
     Dates: start: 20110320, end: 20110414
  24. ALLEGRA [Concomitant]
     Indication: DIARRHOEA
     Dosage: 180 MG, QD
     Route: 048
     Dates: start: 20110325
  25. LACTICARE HC [Concomitant]
     Indication: PALMAR-PLANTAR ERYTHRODYSAESTHESIA SYNDROME
     Dosage: PRN
     Route: 061
     Dates: start: 20110325, end: 20110502
  26. LACTICARE HC [Concomitant]
     Dosage: PRN
     Route: 061
     Dates: start: 20110722
  27. BACTROBAN [Concomitant]
     Indication: EXCORIATION
     Dosage: UNK, PRN
     Route: 061
     Dates: start: 20110725
  28. SODIUM POLYSTYRENE SULFONATE [Concomitant]
     Indication: PROPHYLAXIS
     Dosage: 40 ML, Q2HR
     Route: 048
     Dates: start: 20110811, end: 20110813
  29. SODIUM POLYSTYRENE SULFONATE [Concomitant]
     Dosage: 40 ML, Q2HR
     Route: 048
     Dates: start: 20110814, end: 20110814
  30. SODIUM POLYSTYRENE SULFONATE [Concomitant]
     Dosage: 40 ML, TID
     Route: 048
     Dates: start: 20110815
  31. MEK INHIBITOR (DIHYDROXYPROP-DIFLU-METHOXYPHEN-CYCLOPROPA-SULFAMI) [Suspect]
     Dosage: 50 MG, BID
     Route: 048
     Dates: start: 20110319, end: 20110328
  32. MEK INHIBITOR (DIHYDROXYPROP-DIFLU-METHOXYPHEN-CYCLOPROPA-SULFAMI) [Suspect]
     Dosage: 50 MG, QD
     Route: 048
     Dates: start: 20110429, end: 20110429
  33. SORAFENIB (RAF KINASE INHIBITOR) [Suspect]
     Dosage: 400 MG, BID
     Route: 048
     Dates: start: 20110408, end: 20110428
  34. BARACLUDE [Concomitant]
     Indication: HEPATITIS B
     Dosage: 0.5 MG, QD
     Route: 048
     Dates: start: 20101110
  35. SMECTA [SMECTITE] [Concomitant]
     Indication: DIARRHOEA
     Dosage: 20 ML, TID
     Route: 048
     Dates: start: 20110322, end: 20110323
  36. LOPERAMIDE HCL [Concomitant]
     Indication: DIARRHOEA
     Dosage: 2 MG, TID
     Route: 048
     Dates: start: 20110322, end: 20110323
  37. SORAFENIB (RAF KINASE INHIBITOR) [Suspect]
     Dosage: 400 MG, QD
     Route: 048
     Dates: start: 20110511, end: 20110511
  38. GASMOTIN [Concomitant]
     Indication: GASTRIC ULCER
     Dosage: 5 MG, QD
     Route: 048
     Dates: start: 20110317, end: 20110317
  39. KLENZO SOLUTION [Concomitant]
     Indication: DECREASED APPETITE
     Dosage: UNK UNK, PRN
     Route: 048
     Dates: start: 20110701, end: 20110714
  40. SORAFENIB (RAF KINASE INHIBITOR) [Suspect]
     Indication: HEPATIC NEOPLASM MALIGNANT
     Dosage: 400 MG, QD
     Route: 048
     Dates: start: 20110318, end: 20110318
  41. SORAFENIB (RAF KINASE INHIBITOR) [Suspect]
     Dosage: 600MG (200/400MG QD)
     Route: 048
     Dates: start: 20110319, end: 20110407
  42. ULTRAVIST 150 [Concomitant]
     Indication: COMPUTERISED TOMOGRAM
     Dosage: 140 ML, ONCE
     Route: 042
     Dates: start: 20100314, end: 20100314
  43. HEPADIAL [DIMECROTIC ACID] [Concomitant]
     Indication: GASTRIC ULCER
     Dosage: 50 MG, TID
     Route: 048
     Dates: start: 20101123, end: 20110324
  44. GASMOTIN [Concomitant]
     Dosage: 5 MG, QD
     Route: 048
     Dates: start: 20110318, end: 20110318
  45. PANTOPRAZOLE SODIUM [Concomitant]
     Indication: GASTRIC ULCER
     Dosage: 20 MG, QD
     Route: 048
     Dates: start: 20110613, end: 20110714
  46. ISOLEUCINE [Concomitant]
     Indication: DECREASED APPETITE
     Dosage: 500 ML, QOD
     Route: 042
     Dates: start: 20110723, end: 20110802
  47. ISOLEUCINE [Concomitant]
     Dosage: 500 ML, QD
     Route: 042
     Dates: start: 20110812, end: 20110812
  48. BANAN [Concomitant]
     Indication: INFECTION PROPHYLAXIS
     Dosage: 100 MG, TID
     Route: 048
     Dates: start: 20110815
  49. MEK INHIBITOR (DIHYDROXYPROP-DIFLU-METHOXYPHEN-CYCLOPROPA-SULFAMI) [Suspect]
     Indication: HEPATIC NEOPLASM MALIGNANT
     Dosage: 50 MG, QD
     Route: 048
     Dates: start: 20110318, end: 20110318
  50. SORAFENIB (RAF KINASE INHIBITOR) [Suspect]
     Dosage: 400 MG, BID
     Route: 048
     Dates: start: 20110512, end: 20110714
  51. ULTRAVIST 150 [Concomitant]
     Dosage: 140 ML, ONCE
     Route: 042
     Dates: start: 20110422, end: 20110422
  52. HEPATAMINE [Concomitant]
     Indication: MEDICAL DIET
     Dosage: 500 ML, QD
     Route: 042
     Dates: start: 20110311, end: 20110311
  53. METOCLOPRAMIDE [Concomitant]
     Indication: NAUSEA
     Dosage: 10 MG, QD
     Route: 042
     Dates: start: 20110422, end: 20110422
  54. XYZAL [Concomitant]
     Indication: PALMAR-PLANTAR ERYTHRODYSAESTHESIA SYNDROME
     Dosage: 5 MG, QD
     Route: 048
     Dates: start: 20110504, end: 20110522

REACTIONS (3)
  - HEPATIC FAILURE [None]
  - MYOPATHY [None]
  - LEFT VENTRICULAR DYSFUNCTION [None]
